FAERS Safety Report 5938168-8 (Version None)
Quarter: 2008Q4

REPORT INFORMATION
  Report Type: 
  Country: None (occurrence: None)
  Receive Date: 20081031
  Receipt Date: 20081023
  Transmission Date: 20090506
  Serious: No
  Sender: FDA-Public Use
  Company Number: US-B.I. PHARMACEUTICALS,INC./RIDGEFIELD-2008-BP-16282BP

PATIENT
  Age: 41 Year
  Sex: Male

DRUGS (2)
  1. SPIRIVA [Suspect]
     Indication: ASTHMA
     Dosage: 18MCG
     Route: 055
     Dates: start: 20081002
  2. OTHER ASTHMA MEDICATIONS [Concomitant]
     Indication: ASTHMA

REACTIONS (3)
  - CHEST DISCOMFORT [None]
  - MYALGIA [None]
  - PAIN IN EXTREMITY [None]
